FAERS Safety Report 7136554-4 (Version None)
Quarter: 2010Q4

REPORT INFORMATION
  Report Type: 
  Country: None (occurrence: None)
  Receive Date: 20101206
  Receipt Date: 20101130
  Transmission Date: 20110411
  Serious: Yes (Hospitalization)
  Sender: FDA-Public Use
  Company Number: US-SHIRE-ALL1-2010-06245

PATIENT
  Sex: Male
  Weight: 95.238 kg

DRUGS (2)
  1. FOSRENOL [Suspect]
     Indication: HYPERPHOSPHATAEMIA
     Dosage: 1000 MG, OTHER(WITH EACH MEAL)
     Route: 048
     Dates: start: 20101101
  2. PHOSPHATE BINDER [Concomitant]
     Indication: HYPERPHOSPHATAEMIA
     Dosage: UNK MG, UNKNOWN
     Route: 048

REACTIONS (5)
  - ABDOMINAL PAIN [None]
  - BLOOD POTASSIUM INCREASED [None]
  - DYSPNOEA [None]
  - GALLBLADDER DISORDER [None]
  - NAUSEA [None]
